FAERS Safety Report 22366113 (Version 1)
Quarter: 2023Q2

REPORT INFORMATION
  Report Type: Spontaneous
  Country: PL (occurrence: PL)
  Receive Date: 20230525
  Receipt Date: 20230525
  Transmission Date: 20230722
  Serious: Yes (Hospitalization, Congenital Anomaly)
  Sender: FDA-Public Use
  Company Number: PL-NAARI PTE LIMITED-2023NP000030

PATIENT
  Age: 30 Year
  Sex: Female

DRUGS (2)
  1. LEVONORGESTREL AND ETHINYL ESTRADIOL [Suspect]
     Active Substance: ETHINYL ESTRADIOL\LEVONORGESTREL
     Indication: Uterine leiomyoma
     Dosage: UNK, PILLS
     Route: 065
  2. ESTRIOL [Suspect]
     Active Substance: ESTRIOL
     Indication: Vaginal infection
     Dosage: UNK
     Route: 065

REACTIONS (3)
  - Hereditary angioedema with C1 esterase inhibitor deficiency [Recovered/Resolved]
  - Condition aggravated [Recovered/Resolved]
  - Off label use [Unknown]
